FAERS Safety Report 16460453 (Version 5)
Quarter: 2020Q4

REPORT INFORMATION
  Report Type: Report from Study
  Country: None (occurrence: US)
  Receive Date: 20190620
  Receipt Date: 20201119
  Transmission Date: 20210113
  Serious: Yes (Other)
  Sender: FDA-Public Use
  Company Number: US-ABBVIE-18K-163-2251723-00

PATIENT
  Sex: Female

DRUGS (3)
  1. HUMIRA [Suspect]
     Active Substance: ADALIMUMAB
     Indication: RHEUMATOID ARTHRITIS
     Route: 058
     Dates: start: 201607
  2. HUMIRA [Suspect]
     Active Substance: ADALIMUMAB
     Indication: RHEUMATOID ARTHRITIS
  3. HUMIRA [Suspect]
     Active Substance: ADALIMUMAB
     Indication: FIBROMYALGIA

REACTIONS (7)
  - Mobility decreased [Unknown]
  - Post-traumatic pain [Not Recovered/Not Resolved]
  - Arthralgia [Unknown]
  - Back pain [Unknown]
  - Therapeutic response shortened [Unknown]
  - Rheumatoid arthritis [Unknown]
  - Joint injury [Not Recovered/Not Resolved]
